FAERS Safety Report 7048921-8 (Version None)
Quarter: 2010Q4

REPORT INFORMATION
  Report Type: 
  Country: None (occurrence: None)
  Receive Date: 20101008
  Receipt Date: 20100928
  Transmission Date: 20110411
  Serious: Yes (Death)
  Sender: FDA-Public Use
  Company Number: KV201000315

PATIENT
  Age: 44 Year
  Sex: Male

DRUGS (2)
  1. MORPHINE SULFATE [Suspect]
     Indication: PRODUCT USED FOR UNKNOWN INDICATION
     Dosage: ORAL
     Route: 048
     Dates: start: 20080909, end: 20080923
  2. CHEMOTHERAPEUTICS NOS [Concomitant]

REACTIONS (1)
  - UNRESPONSIVE TO STIMULI [None]
